FAERS Safety Report 7086929-7 (Version None)
Quarter: 2010Q4

REPORT INFORMATION
  Report Type: 
  Country: None (occurrence: None)
  Receive Date: 20101106
  Receipt Date: 20090610
  Transmission Date: 20110411
  Serious: No
  Sender: FDA-Public Use
  Company Number: HQWYE876502JUL07

PATIENT
  Sex: Male
  Weight: 81.72 kg

DRUGS (12)
  1. EFFEXOR XR [Suspect]
     Indication: DEPRESSION
     Route: 048
     Dates: start: 19980101, end: 20020101
  2. EFFEXOR XR [Suspect]
     Indication: PANIC ATTACK
     Route: 048
     Dates: start: 20020101, end: 20020101
  3. EFFEXOR XR [Suspect]
     Route: 048
     Dates: start: 20020101, end: 20020101
  4. EFFEXOR XR [Suspect]
     Route: 048
     Dates: end: 20030101
  5. EFFEXOR XR [Suspect]
     Route: 048
     Dates: start: 20030101, end: 20030101
  6. EFFEXOR XR [Suspect]
     Route: 048
     Dates: start: 20030101, end: 20030101
  7. EFFEXOR XR [Suspect]
     Route: 048
     Dates: end: 20050101
  8. EFFEXOR XR [Suspect]
     Route: 048
     Dates: start: 20050101, end: 20050101
  9. EFFEXOR XR [Suspect]
     Route: 048
     Dates: start: 20050101, end: 20050101
  10. EFFEXOR XR [Suspect]
     Route: 048
  11. ALLEGRA [Concomitant]
  12. ACETAMINOPHEN [Concomitant]

REACTIONS (4)
  - DISSOCIATIVE DISORDER [None]
  - DRUG WITHDRAWAL SYNDROME [None]
  - PARAESTHESIA [None]
  - UNEVALUABLE EVENT [None]
